FAERS Safety Report 4653506-4 (Version None)
Quarter: 2005Q2

REPORT INFORMATION
  Report Type: 
  Country: None (occurrence: None)
  Receive Date: 20050505
  Receipt Date: 20050428
  Transmission Date: 20051028
  Serious: Yes (Other)
  Sender: FDA-Public Use
  Company Number: JP-MERCK-0505USA00131

PATIENT
  Age: 67 Year
  Sex: Male

DRUGS (4)
  1. PEPCID [Suspect]
     Route: 042
  2. ATROPINE SULFATE [Concomitant]
     Route: 065
  3. NICARDIPINE HYDROCHLORIDE [Concomitant]
     Route: 042
  4. TETRACAINE [Concomitant]
     Route: 065

REACTIONS (10)
  - ANGINA PECTORIS [None]
  - BLOOD PRESSURE SYSTOLIC DECREASED [None]
  - CARDIAC FAILURE [None]
  - CHEST DISCOMFORT [None]
  - DEPRESSED LEVEL OF CONSCIOUSNESS [None]
  - ELECTROCARDIOGRAM ST SEGMENT DEPRESSION [None]
  - HYPONATRAEMIA [None]
  - METABOLIC ACIDOSIS [None]
  - RESTLESSNESS [None]
  - TRANSURETHRAL RESECTION SYNDROME [None]
